FAERS Safety Report 8772307 (Version 4)
Quarter: 2013Q1

REPORT INFORMATION
  Report Type: Spontaneous
  Country: US (occurrence: US)
  Receive Date: 20120906
  Receipt Date: 20130225
  Transmission Date: 20140127
  Serious: Yes (Other)
  Sender: FDA-Public Use
  Company Number: US-BIOGENIDEC-2012BI034977

PATIENT
  Age: 34 Year
  Sex: Female

DRUGS (2)
  1. AVONEX [Suspect]
     Indication: MULTIPLE SCLEROSIS
     Route: 030
     Dates: start: 20120507
  2. KEPPRA [Concomitant]
     Indication: CONVULSION

REACTIONS (21)
  - CSF volume increased [Not Recovered/Not Resolved]
  - Poor venous access [Not Recovered/Not Resolved]
  - Crying [Not Recovered/Not Resolved]
  - Nasopharyngitis [Not Recovered/Not Resolved]
  - Hemiplegia [Unknown]
  - Aphasia [Unknown]
  - Central venous catheterisation [Recovered/Resolved]
  - Catheter site swelling [Not Recovered/Not Resolved]
  - Amnesia [Not Recovered/Not Resolved]
  - Catheter site pain [Not Recovered/Not Resolved]
  - Weight increased [Not Recovered/Not Resolved]
  - Dehydration [Recovered/Resolved]
  - Gait disturbance [Recovered/Resolved]
  - Hemiparesis [Unknown]
  - Decreased appetite [Not Recovered/Not Resolved]
  - Pain in extremity [Unknown]
  - Pain [Not Recovered/Not Resolved]
  - Injection site pain [Unknown]
  - Emotional disorder [Not Recovered/Not Resolved]
  - Multiple sclerosis relapse [Recovered/Resolved]
  - Muscle spasms [Unknown]
